FAERS Safety Report 12541713 (Version 1)
Quarter: 2016Q3

REPORT INFORMATION
  Report Type: Spontaneous
  Country: BR (occurrence: BR)
  Receive Date: 20160708
  Receipt Date: 20160708
  Transmission Date: 20161109
  Serious: Yes (Hospitalization, Other)
  Sender: FDA-Public Use
  Company Number: BR-ACTAVIS-2016-14350

PATIENT
  Age: 25 Year
  Sex: Female

DRUGS (1)
  1. PROPYLTHIOURACIL. [Suspect]
     Active Substance: PROPYLTHIOURACIL
     Indication: BASEDOW^S DISEASE
     Dosage: UNK
     Route: 065

REACTIONS (3)
  - Gastrointestinal haemorrhage [Unknown]
  - Epidermal necrosis [Recovered/Resolved with Sequelae]
  - Anti-neutrophil cytoplasmic antibody positive vasculitis [Recovered/Resolved with Sequelae]
